FAERS Safety Report 8921790 (Version 1)
Quarter: 2012Q4

REPORT INFORMATION
  Report Type: 
  Country: US (occurrence: US)
  Receive Date: 20121121
  Receipt Date: 20121121
  Transmission Date: 20130627
  Serious: Yes (Other)
  Sender: FDA-Public Use
  Company Number: US-ROCHE-1154785

PATIENT
  Age: 49 Year
  Sex: Female

DRUGS (4)
  1. AVASTIN [Suspect]
     Indication: BREAST CANCER
     Route: 042
  2. ABRAXANE [Concomitant]
  3. TAXOL [Concomitant]
     Route: 065
  4. CYTOXAN [Concomitant]
     Route: 065

REACTIONS (18)
  - Arthritis infective [Unknown]
  - Stomatitis [Unknown]
  - Cough [Unknown]
  - Rhinorrhoea [Unknown]
  - Lacrimation increased [Unknown]
  - Tongue disorder [Unknown]
  - Alopecia [Unknown]
  - Amnesia [Unknown]
  - Nausea [Unknown]
  - Fatigue [Unknown]
  - Fall [Unknown]
  - Pyrexia [Unknown]
  - Nasopharyngitis [Unknown]
  - Dry mouth [Unknown]
  - Irritability [Unknown]
  - Nail discolouration [Unknown]
  - Neuropathy peripheral [Unknown]
  - Head injury [Unknown]
